FAERS Safety Report 10609961 (Version 1)
Quarter: 2014Q4

REPORT INFORMATION
  Report Type: Spontaneous
  Country: US (occurrence: US)
  Receive Date: 20141126
  Receipt Date: 20141126
  Transmission Date: 20150529
  Serious: No
  Sender: FDA-Public Use
  Company Number: US-PFIZER INC-2014321433

PATIENT
  Age: 43 Year
  Sex: Female
  Weight: 52.61 kg

DRUGS (3)
  1. VIBRAMYCIN [Suspect]
     Active Substance: DOXYCYCLINE
     Indication: UTERINE INFECTION
     Dosage: UNK (2 TEASPOONS OF 10 ML )
     Dates: start: 20141119
  2. ALPRAZOLAM. [Concomitant]
     Active Substance: ALPRAZOLAM
     Indication: EPILEPSY
     Dosage: 25 MG, UNK (TWICE A DAY OR AS NEEDED)
  3. PROPRANOLOL [Concomitant]
     Active Substance: PROPRANOLOL\PROPRANOLOL HYDROCHLORIDE
     Indication: ARRHYTHMIA
     Dosage: 10 MG, AS NEEDED

REACTIONS (7)
  - Nausea [Unknown]
  - Dizziness [Unknown]
  - Hypoaesthesia oral [Unknown]
  - Diarrhoea [Unknown]
  - Fatigue [Unknown]
  - Intentional product misuse [Unknown]
  - Somnolence [Unknown]

NARRATIVE: CASE EVENT DATE: 20141119
